FAERS Safety Report 4341633-0 (Version None)
Quarter: 2004Q2

REPORT INFORMATION
  Report Type: 
  Country: None (occurrence: None)
  Receive Date: 20040419
  Receipt Date: 20040419
  Transmission Date: 20050107
  Serious: No
  Sender: FDA-Public Use
  Company Number: None

PATIENT
  Age: 28 Year
  Sex: Female
  Weight: 59.8748 kg

DRUGS (1)
  1. ORTHO EVRA [Suspect]
     Indication: CONTRACEPTION
     Dosage: ONE PATCH A WEEK TOPICAL
     Route: 061
     Dates: start: 20030710, end: 20040408

REACTIONS (3)
  - DRUG INEFFECTIVE [None]
  - METRORRHAGIA [None]
  - UNINTENDED PREGNANCY [None]
